FAERS Safety Report 11813391 (Version 1)
Quarter: 2015Q4

REPORT INFORMATION
  Report Type: Spontaneous
  Country: US (occurrence: None)
  Receive Date: 20151207
  Receipt Date: 20151207
  Transmission Date: 20160305
  Serious: No
  Sender: FDA-Public Use
  Company Number: None

PATIENT
  Age: 65 Year
  Sex: Female

DRUGS (1)
  1. SPRYCEL [Suspect]
     Active Substance: DASATINIB
     Indication: LEUKAEMIA
     Dosage: DOSE FORM: ORAL  FREQUENCY: 6DAY/WK
     Route: 048
     Dates: start: 201411

REACTIONS (1)
  - Nausea [None]

NARRATIVE: CASE EVENT DATE: 20151203
